FAERS Safety Report 18050199 (Version 4)
Quarter: 2024Q2

REPORT INFORMATION
  Report Type: Spontaneous
  Country: US (occurrence: US)
  Receive Date: 20200721
  Receipt Date: 20240524
  Transmission Date: 20240716
  Serious: Yes (Death, Hospitalization, Other)
  Sender: FDA-Public Use
  Company Number: US-TEVA-2020-US-1804283

PATIENT
  Age: 52 Year
  Sex: Female
  Weight: 61.2 kg

DRUGS (12)
  1. HYDROCHLOROTHIAZIDE\VALSARTAN [Suspect]
     Active Substance: HYDROCHLOROTHIAZIDE\VALSARTAN
     Indication: Hypertension
     Dosage: DOSAGE TEXT: VALSARTAN 160 MG/ HYDROCHLOROTHIAZIDE 25 MG
     Route: 048
     Dates: start: 20170306, end: 20170428
  2. VALSARTAN [Suspect]
     Active Substance: VALSARTAN
     Indication: Hypertension
     Route: 048
     Dates: start: 20121120, end: 20121220
  3. LOSARTAN [Concomitant]
     Active Substance: LOSARTAN
     Indication: Hypertension
     Route: 065
  4. HYDROCHLOROTHIAZIDE [Concomitant]
     Active Substance: HYDROCHLOROTHIAZIDE
     Indication: Hypertension
     Route: 065
  5. BENICAR HCT [Concomitant]
     Active Substance: HYDROCHLOROTHIAZIDE\OLMESARTAN MEDOXOMIL
     Indication: Hypertension
     Route: 065
  6. Revatio and Sildenafil [Concomitant]
     Indication: Hypertension
     Dosage: TIME INTERVAL: 0.333 DAYS
     Route: 065
     Dates: start: 2007, end: 202003
  7. Metropolol Succinate Extended Release [Concomitant]
     Indication: Cardiac failure congestive
     Route: 065
     Dates: start: 2007
  8. DIGOXIN [Concomitant]
     Active Substance: DIGOXIN
     Indication: Cardiac failure congestive
     Route: 065
     Dates: start: 2007, end: 2012
  9. CARVEDILOL [Concomitant]
     Active Substance: CARVEDILOL
     Indication: Cardiac failure congestive
     Route: 065
     Dates: start: 2007
  10. HYDROCHLOROTHIAZIDE\VALSARTAN [Suspect]
     Active Substance: HYDROCHLOROTHIAZIDE\VALSARTAN
     Indication: Hypertension
     Dosage: DOSAGE TEXT: VALSARTAN 160 MG/ HYDROCHLOROTHIAZIDE 25 MG??VALSARTAN/HYDROCHLOROTHIAZIDE MACLEODS
     Route: 048
     Dates: start: 20160520, end: 20160619
  11. HYDROCHLOROTHIAZIDE\VALSARTAN [Suspect]
     Active Substance: HYDROCHLOROTHIAZIDE\VALSARTAN
     Indication: Hypertension
     Dosage: DOSAGE TEXT: VALSARTAN 160 MG/ HYDROCHLOROTHIAZIDE 25 MG?VALSARTAN W/HYDROCHLOROTHIAZIDE LUPIN
     Route: 048
     Dates: start: 20160620, end: 20160720
  12. HYDROCHLOROTHIAZIDE\VALSARTAN [Suspect]
     Active Substance: HYDROCHLOROTHIAZIDE\VALSARTAN
     Indication: Hypertension
     Dosage: DOSAGE TEXT: VALSARTAN 160 MG/ HYDROCHLOROTHIAZIDE 25 MG??VALSARTAN /HYDROCHLOROTHIAZIDE SOLCO
     Route: 048
     Dates: start: 20160726, end: 20170115

REACTIONS (2)
  - Death [Fatal]
  - Rectosigmoid cancer [Recovered/Resolved]

NARRATIVE: CASE EVENT DATE: 20230208
